FAERS Safety Report 9304258 (Version 2)
Quarter: 2013Q2

REPORT INFORMATION
  Report Type: Spontaneous
  Country: KR (occurrence: KR)
  Receive Date: 20130522
  Receipt Date: 20130605
  Transmission Date: 20140414
  Serious: Yes (Hospitalization, Disabling, Other)
  Sender: FDA-Public Use
  Company Number: KR-WATSON-2013-08726

PATIENT
  Age: 30 Year
  Sex: Female

DRUGS (13)
  1. LIDOCAINE HYDROCHLORIDE (AMALLC) [Suspect]
     Indication: EPIDURAL ANAESTHESIA
     Dosage: 3 ML OF LIDOCAINE 2%
     Route: 008
  2. LIDOCAINE HYDROCHLORIDE (AMALLC) [Suspect]
     Indication: LABOUR PAIN
     Dosage: 5 ML OF 0.8 % LIDOCAINE
     Route: 008
  3. LIDOCAINE HYDROCHLORIDE (AMALLC) [Suspect]
     Dosage: 10 ML OF 0.8 % LIDOCAINE, 3 TIMES
     Route: 008
  4. LIDOCAINE HYDROCHLORIDE (AMALLC) [Suspect]
     Dosage: 20 ML OF 2 % LIDOCAINE
     Route: 008
  5. LIDOCAINE HYDROCHLORIDE (AMALLC) [Suspect]
     Dosage: 5 ML OF 2 % LIDOCAINE
     Route: 008
  6. BUPIVACAINE (UNKNOWN) [Suspect]
     Indication: EPIDURAL ANAESTHESIA
     Dosage: 10 ML BUPIVACAINE 0.15%
     Route: 008
  7. BUPIVACAINE (UNKNOWN) [Suspect]
     Indication: LABOUR PAIN
     Dosage: 5 ML OF 0.15 % BUPIVACAINE
     Route: 008
  8. BUPIVACAINE (UNKNOWN) [Suspect]
     Dosage: 5 ML OF 0.5% BUPIVACAINE
     Route: 008
  9. BUPIVACAINE (UNKNOWN) [Suspect]
     Dosage: 10 ML OF 0.15 % BUPIVACAINE
     Route: 008
  10. BUPIVACAINE (UNKNOWN) [Suspect]
     Dosage: 2 ML OF 0.15 % BUPIVACAINE EVERY HOUR, WITH THE OPTION TO INJECT ADDITIONAL 4 ML EVERY 15 MIN
     Route: 008
  11. FENTANYL CITRATE (WATSON LABORATORIES) [Suspect]
     Indication: EPIDURAL ANALGESIA
     Dosage: 50 MCG, 3 TIMES
     Route: 008
  12. FENTANYL CITRATE (WATSON LABORATORIES) [Suspect]
     Indication: LABOUR PAIN
     Dosage: 100 MCG, UNK
     Route: 008
  13. MEPERIDINE HYDROCHLORIDE (WATSON LABORATORIES) [Suspect]
     Indication: EPIDURAL ANALGESIA
     Dosage: 25 MG, SINGLE
     Route: 008

REACTIONS (4)
  - Arachnoiditis [Recovered/Resolved with Sequelae]
  - Paraplegia [Recovered/Resolved with Sequelae]
  - Maternal exposure during delivery [Unknown]
  - Anaemia [None]
